FAERS Safety Report 7694324-2 (Version None)
Quarter: 2011Q3

REPORT INFORMATION
  Report Type: 
  Country: None (occurrence: None)
  Receive Date: 20110819
  Receipt Date: 20110815
  Transmission Date: 20111222
  Serious: Yes (Hospitalization)
  Sender: FDA-Public Use
  Company Number: SE-EISAI INC-E2080-00402-SPO-SE

PATIENT
  Age: 11 Year
  Sex: Male

DRUGS (5)
  1. FRISIUM [Concomitant]
     Indication: EPILEPSY
  2. TERALEN [Concomitant]
     Indication: SLEEP DISORDER
     Route: 048
  3. INOVELON [Suspect]
     Indication: EPILEPSY
     Route: 048
     Dates: start: 20081213
  4. FENEMAL [Concomitant]
     Indication: EPILEPSY
  5. STRATTERA [Concomitant]
     Route: 048
     Dates: start: 20101001

REACTIONS (2)
  - URINARY RETENTION [None]
  - MUSCLE SPASMS [None]
